FAERS Safety Report 20790402 (Version 1)
Quarter: 2022Q2

REPORT INFORMATION
  Report Type: Report from Study
  Country: DE (occurrence: DE)
  Receive Date: 20220505
  Receipt Date: 20220505
  Transmission Date: 20220721
  Serious: Yes (Other)
  Sender: FDA-Public Use
  Company Number: DE-TAKEDA-2022TUS018148

PATIENT
  Age: 3 Year
  Sex: Male

DRUGS (24)
  1. TEDUGLUTIDE [Suspect]
     Active Substance: TEDUGLUTIDE
     Indication: Short-bowel syndrome
     Dosage: 0.14 MILLIGRAM, QD
     Route: 042
     Dates: start: 20191210, end: 20200924
  2. TEDUGLUTIDE [Suspect]
     Active Substance: TEDUGLUTIDE
     Indication: Short-bowel syndrome
     Dosage: 0.14 MILLIGRAM, QD
     Route: 042
     Dates: start: 20191210, end: 20200924
  3. TEDUGLUTIDE [Suspect]
     Active Substance: TEDUGLUTIDE
     Indication: Short-bowel syndrome
     Dosage: 0.14 MILLIGRAM, QD
     Route: 042
     Dates: start: 20191210, end: 20200924
  4. TEDUGLUTIDE [Suspect]
     Active Substance: TEDUGLUTIDE
     Indication: Short-bowel syndrome
     Dosage: 0.14 MILLIGRAM, QD
     Route: 042
     Dates: start: 20191210, end: 20200924
  5. TEDUGLUTIDE [Suspect]
     Active Substance: TEDUGLUTIDE
     Dosage: 0.18 MILLIGRAM, QD
     Route: 042
     Dates: start: 20200925, end: 20201119
  6. TEDUGLUTIDE [Suspect]
     Active Substance: TEDUGLUTIDE
     Dosage: 0.18 MILLIGRAM, QD
     Route: 042
     Dates: start: 20200925, end: 20201119
  7. TEDUGLUTIDE [Suspect]
     Active Substance: TEDUGLUTIDE
     Dosage: 0.18 MILLIGRAM, QD
     Route: 042
     Dates: start: 20200925, end: 20201119
  8. TEDUGLUTIDE [Suspect]
     Active Substance: TEDUGLUTIDE
     Dosage: 0.18 MILLIGRAM, QD
     Route: 042
     Dates: start: 20200925, end: 20201119
  9. TEDUGLUTIDE [Suspect]
     Active Substance: TEDUGLUTIDE
     Dosage: 0.2 MILLIGRAM, QD
     Route: 042
     Dates: start: 20201120, end: 20210114
  10. TEDUGLUTIDE [Suspect]
     Active Substance: TEDUGLUTIDE
     Dosage: 0.2 MILLIGRAM, QD
     Route: 042
     Dates: start: 20201120, end: 20210114
  11. TEDUGLUTIDE [Suspect]
     Active Substance: TEDUGLUTIDE
     Dosage: 0.2 MILLIGRAM, QD
     Route: 042
     Dates: start: 20201120, end: 20210114
  12. TEDUGLUTIDE [Suspect]
     Active Substance: TEDUGLUTIDE
     Dosage: 0.2 MILLIGRAM, QD
     Route: 042
     Dates: start: 20201120, end: 20210114
  13. TEDUGLUTIDE [Suspect]
     Active Substance: TEDUGLUTIDE
     Dosage: 0.22 MILLIGRAM, QD
     Route: 042
     Dates: start: 20210115
  14. TEDUGLUTIDE [Suspect]
     Active Substance: TEDUGLUTIDE
     Dosage: 0.22 MILLIGRAM, QD
     Route: 042
     Dates: start: 20210115
  15. TEDUGLUTIDE [Suspect]
     Active Substance: TEDUGLUTIDE
     Dosage: 0.22 MILLIGRAM, QD
     Route: 042
     Dates: start: 20210115
  16. TEDUGLUTIDE [Suspect]
     Active Substance: TEDUGLUTIDE
     Dosage: 0.22 MILLIGRAM, QD
     Route: 042
     Dates: start: 20210115
  17. TEDUGLUTIDE [Suspect]
     Active Substance: TEDUGLUTIDE
     Dosage: 0.24 MILLIGRAM, QD
     Route: 042
     Dates: start: 20210712
  18. TEDUGLUTIDE [Suspect]
     Active Substance: TEDUGLUTIDE
     Dosage: 0.24 MILLIGRAM, QD
     Route: 042
     Dates: start: 20210712
  19. TEDUGLUTIDE [Suspect]
     Active Substance: TEDUGLUTIDE
     Dosage: 0.24 MILLIGRAM, QD
     Route: 042
     Dates: start: 20210712
  20. TEDUGLUTIDE [Suspect]
     Active Substance: TEDUGLUTIDE
     Dosage: 0.24 MILLIGRAM, QD
     Route: 042
     Dates: start: 20210712
  21. VEDROP [Concomitant]
     Indication: Supplementation therapy
     Dosage: 2 MILLILITER, QD
     Route: 048
     Dates: start: 20210124
  22. VITADRAL [Concomitant]
     Indication: Supplementation therapy
     Dosage: 25 GTT DROPS, QD
     Route: 048
     Dates: start: 20200925
  23. DIETARY SUPPLEMENT\HERBALS\MILK THISTLE [Concomitant]
     Active Substance: DIETARY SUPPLEMENT\HERBALS\MILK THISTLE
     Indication: Supplementation therapy
     Dosage: 1 DOSAGE FORM
     Route: 048
     Dates: start: 20200330
  24. URSODIOL [Concomitant]
     Active Substance: URSODIOL
     Indication: Liver disorder
     Dosage: 75 MILLIGRAM, BID
     Route: 048
     Dates: start: 20190805, end: 20200330

REACTIONS (1)
  - Gastroenteritis adenovirus [Recovered/Resolved]

NARRATIVE: CASE EVENT DATE: 20220115
